FAERS Safety Report 8557348-9 (Version None)
Quarter: 2012Q3

REPORT INFORMATION
  Report Type: 
  Country: None (occurrence: None)
  Receive Date: 20120801
  Receipt Date: 20120730
  Transmission Date: 20120928
  Serious: Yes (Hospitalization, Other)
  Sender: FDA-Public Use
  Company Number: US-PFIZER INC-2012155170

PATIENT
  Sex: Female
  Weight: 65.76 kg

DRUGS (12)
  1. COUMADIN [Concomitant]
     Indication: VISUAL IMPAIRMENT
     Dosage: 250 MG DAILY ON SATURDAYS AND SUNDAYS AND 120 MG DAILY ON THE REST OF DAYS
  2. SYNTHROID [Concomitant]
     Dosage: UNK, DAILY
  3. LEVOXYL [Suspect]
     Indication: THYROID DISORDER
     Dosage: 50 UG, DAILY
  4. ATENOLOL [Concomitant]
     Indication: BLOOD PRESSURE ABNORMAL
     Dosage: UNK
  5. ZOCOR [Concomitant]
     Dosage: 20 MG, UNK
  6. LISINOPRIL [Concomitant]
     Indication: BLOOD PRESSURE ABNORMAL
     Dosage: UNK
  7. TOVIAZ [Suspect]
     Dosage: UNK
  8. TRICOR [Concomitant]
     Dosage: 145 MG, UNK
  9. LEVOXYL [Suspect]
     Dosage: 150 UG, DAILY
  10. LEVOXYL [Suspect]
     Dosage: 100 UG, DAILY
  11. LEVOXYL [Suspect]
     Dosage: 75 UG, DAILY
  12. LEVOXYL [Suspect]
     Dosage: 200 UG, DAILY

REACTIONS (8)
  - CATARACT [None]
  - VISUAL IMPAIRMENT [None]
  - INSOMNIA [None]
  - POLLAKIURIA [None]
  - PAIN IN EXTREMITY [None]
  - OPTIC ISCHAEMIC NEUROPATHY [None]
  - OCULAR VASCULAR DISORDER [None]
  - CARPAL TUNNEL SYNDROME [None]
